FAERS Safety Report 5159493-7 (Version None)
Quarter: 2006Q4

REPORT INFORMATION
  Report Type: 
  Country: None (occurrence: None)
  Receive Date: 20061120
  Receipt Date: 20061113
  Transmission Date: 20070319
  Serious: Yes (Death, Other)
  Sender: FDA-Public Use
  Company Number: 163-21880-06090627

PATIENT
  Age: 80 Year
  Sex: Male

DRUGS (1)
  1. REVLIMID [Suspect]
     Indication: PLASMACYTOMA
     Dosage: 10 MG, 1 IN 1 D, ORAL
     Route: 048
     Dates: start: 20060315, end: 20060801

REACTIONS (3)
  - HEPATIC LESION [None]
  - LYMPHOMA [None]
  - THROMBOCYTOPENIA [None]
